FAERS Safety Report 9308580 (Version 1)
Quarter: 2013Q2

REPORT INFORMATION
  Report Type: Spontaneous
  Country: US (occurrence: US)
  Receive Date: 20130524
  Receipt Date: 20130524
  Transmission Date: 20140414
  Serious: Yes (Hospitalization, Other)
  Sender: FDA-Public Use
  Company Number: US-ELI_LILLY_AND_COMPANY-US201305005799

PATIENT
  Sex: Female

DRUGS (4)
  1. HUMALOG LISPRO [Suspect]
     Indication: TYPE 1 DIABETES MELLITUS
     Dosage: 54 U, QD
     Route: 058
     Dates: start: 1997
  2. HUMALOG LISPRO [Suspect]
     Dosage: 54 U, QD
     Route: 058
  3. PLAVIX [Concomitant]
  4. IMDUR [Concomitant]
     Dosage: 60 DF, UNKNOWN

REACTIONS (5)
  - Cardiac disorder [Unknown]
  - Myocardial infarction [Unknown]
  - Rheumatoid arthritis [Unknown]
  - Blood glucose increased [Recovered/Resolved]
  - Drug ineffective [Recovered/Resolved]
